FAERS Safety Report 21117144 (Version 2)
Quarter: 2022Q3

REPORT INFORMATION
  Report Type: Spontaneous
  Country: FR (occurrence: FR)
  Receive Date: 20220722
  Receipt Date: 20220903
  Transmission Date: 20221027
  Serious: Yes (Hospitalization, Other)
  Sender: FDA-Public Use
  Company Number: FR-AFSSAPS-PA20223353

PATIENT
  Age: 37 Year
  Sex: Female
  Weight: 64 kg

DRUGS (3)
  1. AUBAGIO [Suspect]
     Active Substance: TERIFLUNOMIDE
     Indication: Relapsing-remitting multiple sclerosis
     Dosage: UNK
     Route: 048
     Dates: start: 20210422
  2. COLPRONE [Concomitant]
     Active Substance: MEDROGESTONE
     Indication: Endometriosis
     Dosage: 5 MG
     Route: 048
  3. LEVOTHYROXINE [Concomitant]
     Active Substance: LEVOTHYROXINE
     Indication: Autoimmune thyroiditis
     Dosage: 87.5 UG, QD
     Route: 048

REACTIONS (2)
  - Pulmonary tuberculosis [Unknown]
  - Mycobacterium kansasii infection [Not Recovered/Not Resolved]

NARRATIVE: CASE EVENT DATE: 20220522
